FAERS Safety Report 23433808 (Version 1)
Quarter: 2024Q1

REPORT INFORMATION
  Report Type: Spontaneous
  Country: US (occurrence: None)
  Receive Date: 20240123
  Receipt Date: 20240123
  Transmission Date: 20240410
  Serious: Yes (Death)
  Sender: FDA-Public Use
  Company Number: None

PATIENT
  Sex: Female

DRUGS (4)
  1. TABRECTA [Suspect]
     Active Substance: CAPMATINIB
     Dosage: FREQUENCY : TWICE A DAY;?
     Route: 048
     Dates: start: 202309
  2. RETEVMO [Suspect]
     Active Substance: SELPERCATINIB
     Indication: Lung neoplasm malignant
     Dosage: FREQUENCY : TWICE A DAY;?
     Route: 048
     Dates: start: 202401
  3. RETEVMO [Suspect]
     Active Substance: SELPERCATINIB
     Indication: Metastases to central nervous system
  4. RETEVMO [Suspect]
     Active Substance: SELPERCATINIB
     Indication: Metastases to pleura

REACTIONS (1)
  - Death [None]
